FAERS Safety Report 4932315-2 (Version None)
Quarter: 2006Q1

REPORT INFORMATION
  Report Type: 
  Country: None (occurrence: None)
  Receive Date: 20060228
  Receipt Date: 20060207
  Transmission Date: 20060701
  Serious: Yes (Hospitalization)
  Sender: FDA-Public Use
  Company Number: WAES  0602USA04339

PATIENT
  Sex: 0

DRUGS (2)
  1. DECADRON [Suspect]
     Indication: ASTHMA
     Dosage: 0.1 MG/KG/DAILY PO
     Route: 048
  2. PLACEBO [Suspect]

REACTIONS (1)
  - CHEST PAIN [None]
